FAERS Safety Report 8303428-2 (Version None)
Quarter: 2012Q2

REPORT INFORMATION
  Report Type: 
  Country: None (occurrence: None)
  Receive Date: 20120423
  Receipt Date: 20120418
  Transmission Date: 20120825
  Serious: No
  Sender: FDA-Public Use
  Company Number: US-PFIZER INC-2012033554

PATIENT
  Sex: Male
  Weight: 97.506 kg

DRUGS (2)
  1. CHANTIX [Suspect]
     Indication: SMOKING CESSATION THERAPY
     Dosage: 0.5 MG, 1X/DAY
     Route: 048
  2. HYDROCODONE [Concomitant]
     Indication: INJURY
     Dosage: UNK

REACTIONS (2)
  - STRESS [None]
  - NIGHTMARE [None]
